FAERS Safety Report 4666282-6 (Version None)
Quarter: 2005Q2

REPORT INFORMATION
  Report Type: 
  Country: None (occurrence: None)
  Receive Date: 20050518
  Receipt Date: 20050509
  Transmission Date: 20051028
  Serious: Yes (Hospitalization)
  Sender: FDA-Public Use
  Company Number: 2005072284

PATIENT
  Age: 37 Year
  Sex: Female

DRUGS (1)
  1. FRAGMIN [Suspect]
     Indication: ILL-DEFINED DISORDER
     Dosage: 450000 I.U. (7500 I.U., 1 IN 1 D), SUBCUTANEOUS
     Route: 058
     Dates: start: 20050401, end: 20050401

REACTIONS (4)
  - ABDOMINAL HAEMATOMA [None]
  - HAEMODIALYSIS [None]
  - INTENTIONAL MISUSE [None]
  - SUICIDE ATTEMPT [None]
